FAERS Safety Report 5062870-6 (Version None)
Quarter: 2006Q3

REPORT INFORMATION
  Report Type: 
  Country: None (occurrence: None)
  Receive Date: 20060724
  Receipt Date: 20060710
  Transmission Date: 20061208
  Serious: Yes (Hospitalization, Other)
  Sender: FDA-Public Use
  Company Number: B0431526A

PATIENT
  Age: 44 Year
  Sex: Male
  Weight: 49.306 kg

DRUGS (5)
  1. AUGMENTIN '125' [Suspect]
     Indication: DRUG USE FOR UNKNOWN INDICATION
     Dosage: SEE DOSAGE TEXT ORAL
     Route: 048
  2. OMEPRAZOLE [Suspect]
     Indication: DRUG USE FOR UNKNOWN INDICATION
     Dosage: 20 MG TWICE PER DAY
  3. NEOSTIGMINE BROMIDE [Concomitant]
  4. TRIMEBUTINE [Concomitant]
  5. PAROXETINE HYDROCHLORIDE [Concomitant]

REACTIONS (11)
  - ABDOMINAL DISTENSION [None]
  - ALCOHOL POISONING [None]
  - CANDIDIASIS [None]
  - CONFUSIONAL STATE [None]
  - DISORIENTATION [None]
  - DYSARTHRIA [None]
  - FUNGAL INFECTION [None]
  - GASTRIC HYPOMOTILITY [None]
  - GASTRITIS [None]
  - MUSCLE ENZYME INCREASED [None]
  - REFLUX OESOPHAGITIS [None]
